FAERS Safety Report 10073930 (Version 1)
Quarter: 2014Q2

REPORT INFORMATION
  Report Type: Report from Study
  Country: BR (occurrence: BR)
  Receive Date: 20140412
  Receipt Date: 20140412
  Transmission Date: 20141212
  Serious: Yes (Death, Hospitalization, Other)
  Sender: FDA-Public Use
  Company Number: PHHY2014BR044720

PATIENT
  Age: 56 Year
  Sex: Female
  Weight: 120 kg

DRUGS (1)
  1. DIOVAN HCT [Suspect]
     Indication: HYPERTENSION
     Dosage: (320MG VALS AND 5MG HCTZ), QD

REACTIONS (4)
  - Pelvic neoplasm [Fatal]
  - Abdominal pain [Unknown]
  - Metastasis [Unknown]
  - Blood pressure decreased [Unknown]
